FAERS Safety Report 19257284 (Version 2)
Quarter: 2021Q2

REPORT INFORMATION
  Report Type: Spontaneous
  Country: US (occurrence: US)
  Receive Date: 20210513
  Receipt Date: 20210617
  Transmission Date: 20210717
  Serious: No
  Sender: FDA-Public Use
  Company Number: US-ASTRAZENECA-2021A327788

PATIENT
  Sex: Male
  Weight: 56.7 kg

DRUGS (1)
  1. BEVESPI AEROSPHERE [Suspect]
     Active Substance: FORMOTEROL FUMARATE\GLYCOPYRROLATE
     Indication: EMPHYSEMA
     Dosage: 2 PUFF, TWO TIMES A DAY
     Route: 055

REACTIONS (9)
  - Body height decreased [Not Recovered/Not Resolved]
  - Wrong technique in product usage process [Unknown]
  - Product dose omission issue [Unknown]
  - Weight decreased [Unknown]
  - Visual impairment [Unknown]
  - Insurance issue [Unknown]
  - Drug delivery system issue [Unknown]
  - Device use error [Unknown]
  - Intentional product misuse [Unknown]
